FAERS Safety Report 8365496-1 (Version None)
Quarter: 2012Q2

REPORT INFORMATION
  Report Type: 
  Country: None (occurrence: None)
  Receive Date: 20120516
  Receipt Date: 20120512
  Transmission Date: 20120825
  Serious: Yes (Other)
  Sender: FDA-Public Use
  Company Number: US-BAYER-2012-018759

PATIENT
  Age: 26 Year
  Sex: Female
  Weight: 51.247 kg

DRUGS (6)
  1. FISH OIL [Concomitant]
  2. YASMIN [Suspect]
     Indication: CONTRACEPTION
     Dosage: UNK
     Route: 048
     Dates: start: 20041201, end: 20100501
  3. YAZ [Suspect]
     Indication: CONTRACEPTION
     Dosage: UNK
     Route: 048
     Dates: start: 20041201, end: 20100501
  4. IBUPROFEN [Concomitant]
     Dosage: UNK
     Route: 048
     Dates: start: 20020101
  5. DROSPIRENONE AND ETHINYL ESTRADIOL [Suspect]
     Indication: CONTRACEPTION
     Dosage: UNK
     Route: 048
     Dates: start: 20041201, end: 20100501
  6. VITAMIN B-12 [Concomitant]

REACTIONS (4)
  - ABDOMINAL PAIN [None]
  - CHOLELITHIASIS [None]
  - BILIARY DYSKINESIA [None]
  - POLYCYSTIC OVARIES [None]
